FAERS Safety Report 24720133 (Version 1)
Quarter: 2024Q4

REPORT INFORMATION
  Report Type: Spontaneous
  Country: FR (occurrence: FR)
  Receive Date: 20241211
  Receipt Date: 20241211
  Transmission Date: 20250115
  Serious: No
  Sender: BLUEPRINT MEDICINES
  Company Number: FR-Blueprint Medicines Corporation-LT-FR-2024-002510

PATIENT
  Age: 38 Year
  Sex: Male

DRUGS (1)
  1. AVAPRITINIB [Suspect]
     Active Substance: AVAPRITINIB
     Indication: Advanced systemic mastocytosis
     Route: 065

REACTIONS (4)
  - Weight increased [Unknown]
  - Eosinophilia [Unknown]
  - Vitiligo [Unknown]
  - Photosensitivity reaction [Unknown]
